FAERS Safety Report 7780472-5 (Version None)
Quarter: 2011Q3

REPORT INFORMATION
  Report Type: 
  Country: None (occurrence: None)
  Receive Date: 20110927
  Receipt Date: 20110617
  Transmission Date: 20111222
  Serious: Yes (Hospitalization, Other)
  Sender: FDA-Public Use
  Company Number: US-GLAXOSMITHKLINE-A0926989A

PATIENT
  Age: 22 Year
  Sex: Female
  Weight: 52.7 kg

DRUGS (2)
  1. EFFEXOR [Concomitant]
  2. LAMICTAL XR [Suspect]
     Indication: CONVULSION
     Dosage: 100MG PER DAY
     Route: 048
     Dates: start: 20110330, end: 20110505

REACTIONS (1)
  - RASH [None]
